FAERS Safety Report 9988278 (Version 1)
Quarter: 2014Q1

REPORT INFORMATION
  Report Type: Spontaneous
  Country: NL (occurrence: NL)
  Receive Date: 20140310
  Receipt Date: 20140310
  Transmission Date: 20141002
  Serious: Yes (Other)
  Sender: FDA-Public Use
  Company Number: NL-ROCHE-1357364

PATIENT
  Sex: Female

DRUGS (3)
  1. HERCEPTIN [Suspect]
     Indication: PRODUCT USED FOR UNKNOWN INDICATION
     Route: 065
  2. PACLITAXEL [Suspect]
     Indication: NEOPLASM
     Route: 065
  3. CARBOPLATIN [Suspect]
     Indication: NEOPLASM
     Route: 065

REACTIONS (4)
  - Fatigue [Recovered/Resolved]
  - Nausea [Recovered/Resolved]
  - Red blood cell count decreased [Unknown]
  - Neuropathy peripheral [Not Recovered/Not Resolved]
